FAERS Safety Report 21916548 (Version 1)
Quarter: 2023Q1

REPORT INFORMATION
  Report Type: Spontaneous
  Country: US (occurrence: US)
  Receive Date: 20230126
  Receipt Date: 20230126
  Transmission Date: 20230418
  Serious: Yes (Other)
  Sender: FDA-Public Use
  Company Number: US-CHEPLA-2023000975

PATIENT
  Age: 71 Year
  Sex: Male
  Weight: 96.599 kg

DRUGS (4)
  1. HYDROXYUREA [Interacting]
     Active Substance: HYDROXYUREA
     Indication: Product used for unknown indication
     Dosage: DAILY DOSE: 500 MILLIGRAM
  2. JAKAFI [Interacting]
     Active Substance: RUXOLITINIB
     Indication: Myelofibrosis
     Dosage: BID (WITH OR WITHOUT FOOD, AVOID GRAPEFRUIT PRODUCTS)?DAILY DOSE: 50 MILLIGRAM
     Route: 048
     Dates: start: 20210514
  3. LIPITOR [Concomitant]
     Active Substance: ATORVASTATIN CALCIUM
  4. PROTONIX [Concomitant]
     Active Substance: PANTOPRAZOLE SODIUM

REACTIONS (3)
  - Squamous cell carcinoma of skin [Recovering/Resolving]
  - Fatigue [Recovering/Resolving]
  - Drug interaction [Unknown]

NARRATIVE: CASE EVENT DATE: 20210514
